FAERS Safety Report 6146885-2 (Version None)
Quarter: 2009Q2

REPORT INFORMATION
  Report Type: 
  Country: None (occurrence: None)
  Receive Date: 20090407
  Receipt Date: 20090327
  Transmission Date: 20091009
  Serious: Yes (Death, Hospitalization)
  Sender: FDA-Public Use
  Company Number: US-BAXTER-2009BH004811

PATIENT
  Age: 58 Year
  Sex: Female

DRUGS (6)
  1. ENDOXAN BAXTER [Suspect]
     Indication: BREAST CANCER
     Route: 065
     Dates: start: 20090225, end: 20090225
  2. ENDOXAN BAXTER [Suspect]
     Route: 065
  3. TAXOTERE [Suspect]
     Indication: BREAST CANCER
     Route: 042
     Dates: start: 20090225, end: 20090225
  4. TAXOTERE [Suspect]
     Route: 042
  5. NEULASTA [Suspect]
     Indication: BREAST CANCER
     Route: 065
     Dates: start: 20090225, end: 20090225
  6. NEULASTA [Suspect]
     Route: 065

REACTIONS (2)
  - DIARRHOEA [None]
  - SEPSIS [None]
